FAERS Safety Report 17389053 (Version 3)
Quarter: 2020Q1

REPORT INFORMATION
  Report Type: Spontaneous
  Country: JP (occurrence: JP)
  Receive Date: 20200207
  Receipt Date: 20200310
  Transmission Date: 20200409
  Serious: Yes (Hospitalization, Other)
  Sender: FDA-Public Use
  Company Number: JP-PFIZER INC-2020012375

PATIENT
  Age: 67 Year
  Sex: Male
  Weight: 76 kg

DRUGS (20)
  1. VYNDAQEL [Suspect]
     Active Substance: TAFAMIDIS MEGLUMINE
     Indication: CARDIAC AMYLOIDOSIS
     Dosage: 80 MG, 1X/DAY
     Route: 048
     Dates: start: 20190918, end: 20200115
  2. TRICHLORMETHIAZIDE NP [Concomitant]
     Dosage: 3 MG, UNK
     Dates: end: 20191210
  3. ARGAMATE [Concomitant]
     Active Substance: CALCIUM POLYSTYRENE SULFONATE
     Indication: HYPERKALAEMIA
     Dosage: 25 G, 2X/DAY
     Route: 048
     Dates: start: 20180509
  4. SAMSCA [Concomitant]
     Active Substance: TOLVAPTAN
     Indication: CARDIAC FAILURE
     Dosage: 7.5 MG, UNK
     Dates: start: 20190402
  5. VYNDAQEL [Suspect]
     Active Substance: TAFAMIDIS MEGLUMINE
     Indication: CARDIAC FAILURE
  6. TRICHLORMETHIAZIDE NP [Concomitant]
     Dosage: 1 MG, UNK
     Dates: start: 20200111
  7. SPIRONOLACTONE. [Suspect]
     Active Substance: SPIRONOLACTONE
     Dosage: 25 MG, 1X/DAY
     Route: 048
     Dates: start: 20190612, end: 20200121
  8. KREMEZIN [Concomitant]
     Active Substance: ACTIVATED CHARCOAL
     Indication: CHRONIC KIDNEY DISEASE
     Dosage: 2000 MG, 3X/DAY
     Route: 048
     Dates: start: 20190612
  9. BEPRICOR [Concomitant]
     Active Substance: BEPRIDIL
     Dosage: 50 MG, DAILY
     Route: 048
     Dates: start: 20200111
  10. SAMSCA [Concomitant]
     Active Substance: TOLVAPTAN
     Dosage: 11.25 MG, UNK
     Dates: start: 20190807, end: 20191001
  11. SAMSCA [Concomitant]
     Active Substance: TOLVAPTAN
     Dosage: 15 MG, 1X/DAY
     Route: 048
     Dates: start: 20191002
  12. NEXIUM [Concomitant]
     Active Substance: ESOMEPRAZOLE MAGNESIUM
     Indication: GASTRITIS
     Dosage: 20 MG, 1X/DAY
     Route: 048
     Dates: start: 20190522
  13. MAINTATE [Concomitant]
     Active Substance: BISOPROLOL FUMARATE
     Indication: CARDIAC FAILURE
     Dosage: 3.125 MG, DAILY (1.25MG, 1.875MG, 2 TIMES DAILY)
     Route: 048
     Dates: start: 20141224
  14. PIMOBENDAN [Concomitant]
     Active Substance: PIMOBENDAN
     Indication: CARDIAC FAILURE
     Dosage: 0.625 MG, 2X/DAY
     Route: 048
     Dates: start: 20191127
  15. BEPRICOR [Concomitant]
     Active Substance: BEPRIDIL
     Indication: ATRIAL TACHYCARDIA
     Dosage: 50 MG, 2X/DAY
     Route: 048
     Dates: start: 20160302
  16. TRICHLORMETHIAZIDE TAIYO [Concomitant]
     Indication: CARDIAC FAILURE
     Dosage: 4 MG, 1X/DAY
     Route: 048
     Dates: start: 20170405
  17. TRICHLORMETHIAZIDE NP [Concomitant]
     Indication: CARDIAC FAILURE
     Dosage: 1 MG, 1X/DAY
     Route: 048
     Dates: start: 20180822
  18. LOSARTAN POTASSIUM. [Suspect]
     Active Substance: LOSARTAN POTASSIUM
     Indication: CARDIAC FAILURE
     Dosage: 25 MG, 1X/DAY
     Route: 048
     Dates: start: 20190904, end: 20200121
  19. TRICHLORMETHIAZIDE NP [Concomitant]
     Dosage: 4 MG, UNK
     Dates: start: 20191211
  20. ASTAXANTHIN [Concomitant]
     Active Substance: ASTAXANTHIN
     Dosage: UNK
     Dates: start: 20190206, end: 20200108

REACTIONS (3)
  - Hyperkalaemia [Recovered/Resolved]
  - Renal impairment [Recovering/Resolving]
  - Cardiac failure [Recovered/Resolved with Sequelae]

NARRATIVE: CASE EVENT DATE: 201910
